FAERS Safety Report 9053878 (Version 1)
Quarter: 2013Q1

REPORT INFORMATION
  Report Type: Spontaneous
  Country: US (occurrence: None)
  Receive Date: 20130201
  Receipt Date: 20130201
  Transmission Date: 20140127
  Serious: Yes (Other)
  Sender: FDA-Public Use
  Company Number: None

PATIENT
  Age: 67 Year
  Sex: Female
  Weight: 68.04 kg

DRUGS (2)
  1. DILTIAZEM 60MG 2 X DAY [Suspect]
     Dates: start: 20120320, end: 20121110
  2. HYDROCHLOROTHIAZIDE 25MG (1 X DAY) [Suspect]
     Dates: start: 20120914, end: 20131112

REACTIONS (2)
  - Photophobia [None]
  - Visual impairment [None]
